FAERS Safety Report 11004136 (Version 7)
Quarter: 2017Q2

REPORT INFORMATION
  Report Type: Report from Study
  Country: CH (occurrence: CH)
  Receive Date: 20150409
  Receipt Date: 20170424
  Transmission Date: 20170829
  Serious: Yes (Hospitalization, Other)
  Sender: FDA-Public Use
  Company Number: CH-ASTELLAS-2015US011488

PATIENT
  Age: 72 Year
  Sex: Female

DRUGS (2)
  1. BEVACIZUMAB [Suspect]
     Active Substance: BEVACIZUMAB
     Indication: NON-SMALL CELL LUNG CANCER
     Dosage: 800 MG, EVERY 3 WEEKS (15 MG/KG D1Q21)
     Route: 042
     Dates: start: 20140630
  2. ERLOTINIB [Suspect]
     Active Substance: ERLOTINIB
     Indication: NON-SMALL CELL LUNG CANCER
     Route: 048
     Dates: start: 20140630

REACTIONS (6)
  - Hypertension [Unknown]
  - Osteomyelitis [Recovered/Resolved]
  - Pneumonitis [Recovered/Resolved]
  - Lung infection [Recovered/Resolved]
  - Acute coronary syndrome [Unknown]
  - Hypertension [Recovered/Resolved]

NARRATIVE: CASE EVENT DATE: 20140630
